FAERS Safety Report 6530262-6 (Version None)
Quarter: 2009Q4

REPORT INFORMATION
  Report Type: 
  Country: None (occurrence: None)
  Receive Date: 20091231
  Receipt Date: 20091215
  Transmission Date: 20100525
  Serious: Yes (Life-Threatening, Hospitalization)
  Sender: FDA-Public Use
  Company Number: 1-20516523

PATIENT
  Age: 59 Year
  Sex: Male
  Weight: 124.7392 kg

DRUGS (7)
  1. WARFARIN SODIUM [Suspect]
     Indication: OXYGEN SATURATION DECREASED
     Dosage: 5 MG DAILY 2D/WK, ORAL
     Route: 048
     Dates: start: 19790701
  2. WARFARIN SODIUM [Suspect]
     Indication: THROMBOSIS PROPHYLAXIS
     Dosage: 5 MG DAILY 2D/WK, ORAL
     Route: 048
     Dates: start: 19790701
  3. WARFARIN SODIUM [Suspect]
     Indication: OXYGEN SATURATION DECREASED
     Dosage: 2.5 MG DAILY 5D/WK, ORAL
     Route: 048
     Dates: start: 19790701
  4. WARFARIN SODIUM [Suspect]
     Indication: THROMBOSIS PROPHYLAXIS
     Dosage: 2.5 MG DAILY 5D/WK, ORAL
     Route: 048
     Dates: start: 19790701
  5. LISINOPRIL [Concomitant]
  6. FUROSEMIDE [Concomitant]
  7. PREVALITE (CHOLESTYRAMINE) POWDER DRINK [Concomitant]

REACTIONS (5)
  - DIARRHOEA [None]
  - GASTROINTESTINAL HAEMORRHAGE [None]
  - GASTROINTESTINAL NECROSIS [None]
  - INTESTINAL ISCHAEMIA [None]
  - TEMPERATURE DIFFERENCE OF EXTREMITIES [None]
